FAERS Safety Report 4974388-7 (Version None)
Quarter: 2006Q2

REPORT INFORMATION
  Report Type: 
  Country: None (occurrence: None)
  Receive Date: 20060410
  Receipt Date: 20060328
  Transmission Date: 20061013
  Serious: Yes (Hospitalization)
  Sender: FDA-Public Use
  Company Number: 2006003623

PATIENT
  Age: 46 Year
  Sex: Male
  Weight: 105.1 kg

DRUGS (13)
  1. SUTENT [Suspect]
     Indication: RENAL CELL CARCINOMA STAGE UNSPECIFIED
     Dosage: 50 MG (50 MG, QD X 28D WITH 14 DAY REST), ORAL
     Route: 048
     Dates: start: 20051123, end: 20051216
  2. FIBERCON (POLYCARBOPHIL CALCIUM) [Concomitant]
  3. COUMADIN [Concomitant]
  4. DEXAMETHASONE [Concomitant]
  5. LIDOCAINE [Concomitant]
  6. TOPROL-XL [Concomitant]
  7. OXYCONTIN [Concomitant]
  8. PANTOPRAZOLE SODIUM [Concomitant]
  9. SENNOSIDES (SENNOSIDE A+B) [Concomitant]
  10. PYRIDOXINE (PYRIDOXINE) [Concomitant]
  11. THIAMINE (THIAMINE) [Concomitant]
  12. ARANESP [Concomitant]
  13. PRILOSEC [Concomitant]

REACTIONS (11)
  - BLOOD CULTURE POSITIVE [None]
  - CATHETER RELATED INFECTION [None]
  - DISEASE PROGRESSION [None]
  - HYPERGLYCAEMIA [None]
  - HYPERHIDROSIS [None]
  - KLEBSIELLA BACTERAEMIA [None]
  - PLATELET COUNT DECREASED [None]
  - STAPHYLOCOCCAL INFECTION [None]
  - TACHYPNOEA [None]
  - URINARY TRACT INFECTION [None]
  - WHITE BLOOD CELL COUNT DECREASED [None]
